FAERS Safety Report 5255705-X (Version None)
Quarter: 2007Q1

REPORT INFORMATION
  Report Type: 
  Country: None (occurrence: None)
  Receive Date: 20070305
  Receipt Date: 20070222
  Transmission Date: 20070707
  Serious: Yes (Other)
  Sender: FDA-Public Use
  Company Number: FR-PFIZER INC-2007014459

PATIENT
  Sex: Male

DRUGS (1)
  1. TAHOR [Suspect]
     Indication: BLOOD CHOLESTEROL

REACTIONS (3)
  - MUSCLE STRAIN [None]
  - MYALGIA [None]
  - OEDEMA [None]
